FAERS Safety Report 14505098 (Version 1)
Quarter: 2018Q1

REPORT INFORMATION
  Report Type: Spontaneous
  Country: IT (occurrence: IT)
  Receive Date: 20180208
  Receipt Date: 20180208
  Transmission Date: 20180509
  Serious: Yes (Hospitalization)
  Sender: FDA-Public Use
  Company Number: IT-PFIZER INC-2018046766

PATIENT
  Age: 72 Year
  Sex: Male

DRUGS (2)
  1. ALIMTA [Suspect]
     Active Substance: PEMETREXED DISODIUM
     Indication: LUNG NEOPLASM MALIGNANT
     Dosage: 500 MG/M2, CYCLIC
     Route: 042
     Dates: start: 20161122, end: 20170321
  2. CARBOPLATIN. [Suspect]
     Active Substance: CARBOPLATIN
     Indication: LUNG NEOPLASM MALIGNANT
     Dosage: 510 MG, CYCLIC
     Route: 042
     Dates: start: 20161122, end: 20170321

REACTIONS (2)
  - Hypertransaminasaemia [Recovered/Resolved]
  - Red blood cell count abnormal [Unknown]

NARRATIVE: CASE EVENT DATE: 20170214
